FAERS Safety Report 4337025-0 (Version None)
Quarter: 2004Q1

REPORT INFORMATION
  Report Type: 
  Country: None (occurrence: None)
  Receive Date: 20040329
  Receipt Date: 20040116
  Transmission Date: 20041129
  Serious: No
  Sender: FDA-Public Use
  Company Number: USA040156885

PATIENT
  Age: 7 Year
  Sex: Male
  Weight: 34 kg

DRUGS (3)
  1. STRATTERA [Suspect]
     Indication: DISTRACTIBILITY
     Dosage: 60 MG/IN THE MORNING
  2. STRATTERA [Suspect]
     Indication: DISTURBANCE IN ATTENTION
     Dosage: 60 MG/IN THE MORNING
  3. ZYRTEC [Concomitant]

REACTIONS (1)
  - PRESCRIBED OVERDOSE [None]
